FAERS Safety Report 10451222 (Version 2)
Quarter: 2014Q3

REPORT INFORMATION
  Report Type: Spontaneous
  Country: US (occurrence: US)
  Receive Date: 20140912
  Receipt Date: 20140912
  Transmission Date: 20150326
  Serious: No
  Sender: FDA-Public Use
  Company Number: US-GALDERMA-US14002186

PATIENT
  Age: 55 Year
  Sex: Male

DRUGS (6)
  1. MIRVASO [Suspect]
     Active Substance: BRIMONIDINE TARTRATE
     Dosage: 0.33%
     Route: 061
  2. METROGEL [Concomitant]
     Active Substance: METRONIDAZOLE
     Dosage: 1%
     Route: 061
     Dates: start: 2013
  3. CETAPHIL MOISTURIZER [Concomitant]
  4. MIRVASO [Suspect]
     Active Substance: BRIMONIDINE TARTRATE
     Dosage: 0.33%
     Route: 061
     Dates: start: 201310, end: 201310
  5. EDGE SENSITIVE SKIN [Concomitant]
     Route: 061
  6. MIRVASO [Suspect]
     Active Substance: BRIMONIDINE TARTRATE
     Indication: ROSACEA
     Dosage: 0.33%
     Route: 061
     Dates: start: 201310, end: 201310

REACTIONS (5)
  - Vasodilatation [Recovered/Resolved]
  - Skin burning sensation [Recovered/Resolved]
  - Inappropriate schedule of drug administration [Recovered/Resolved]
  - Pruritus [Recovered/Resolved]
  - Erythema [Recovered/Resolved]

NARRATIVE: CASE EVENT DATE: 201310
